FAERS Safety Report 12015442 (Version 1)
Quarter: 2016Q1

REPORT INFORMATION
  Report Type: Other
  Country: US (occurrence: US)
  Receive Date: 20160205
  Receipt Date: 20160205
  Transmission Date: 20160526
  Serious: Yes (Other)
  Sender: FDA-Public Use
  Company Number: US-NEXGEN PHARMA, INC.-1047411

PATIENT
  Age: 67 Year
  Sex: Male
  Weight: 72.73 kg

DRUGS (1)
  1. POLYETHYLENE GLYCOL (PEG) [Suspect]
     Active Substance: POLYETHYLENE GLYCOLS
     Route: 048
     Dates: start: 20151215

REACTIONS (5)
  - Drug ineffective [Unknown]
  - Headache [None]
  - Toxicity to various agents [None]
  - Product label issue [None]
  - Nervous system disorder [None]
